FAERS Safety Report 6258273-9 (Version None)
Quarter: 2009Q3

REPORT INFORMATION
  Report Type: 
  Country: None (occurrence: None)
  Receive Date: 20090702
  Receipt Date: 20090702
  Transmission Date: 20100115
  Serious: Yes (Life-Threatening, Hospitalization)
  Sender: FDA-Public Use
  Company Number: None

PATIENT
  Age: 50 Year
  Sex: Female
  Weight: 47.6277 kg

DRUGS (4)
  1. LEXAPRO [Suspect]
     Indication: ANXIETY
     Dosage: 10 MG DAILY
     Dates: start: 20050801, end: 20060801
  2. LEXAPRO [Suspect]
     Indication: DEPRESSION
     Dosage: 10 MG DAILY
     Dates: start: 20050801, end: 20060801
  3. LEXAPRO [Suspect]
     Indication: EMOTIONAL DISORDER
     Dosage: 10 MG DAILY
     Dates: start: 20050801, end: 20060801
  4. LEXAPRO [Suspect]

REACTIONS (13)
  - AGGRESSION [None]
  - AGITATION [None]
  - ANGER [None]
  - ANXIETY [None]
  - DEPRESSION [None]
  - EMOTIONAL DISORDER [None]
  - FEELING ABNORMAL [None]
  - GENERAL PHYSICAL HEALTH DETERIORATION [None]
  - HYPERTENSION [None]
  - PARTNER STRESS [None]
  - SEROTONIN SYNDROME [None]
  - SUICIDAL IDEATION [None]
  - THINKING ABNORMAL [None]
